FAERS Safety Report 7961826-0 (Version None)
Quarter: 2011Q4

REPORT INFORMATION
  Report Type: 
  Country: None (occurrence: None)
  Receive Date: 20111207
  Receipt Date: 20111207
  Transmission Date: 20120403
  Serious: Yes (Other)
  Sender: FDA-Public Use
  Company Number: None

PATIENT
  Age: 44 Year
  Sex: Female
  Weight: 71.667 kg

DRUGS (4)
  1. TRAMADOL HCL [Concomitant]
     Indication: PAIN
     Dosage: 50MG
     Route: 048
     Dates: start: 20110809, end: 20111105
  2. GABAPENTIN [Suspect]
     Indication: PAIN
     Dosage: 300MG
     Route: 048
     Dates: start: 20110926, end: 20111105
  3. VENLAFAXINE [Concomitant]
  4. CYCLOBENZAPRINE [Concomitant]

REACTIONS (4)
  - TREMOR [None]
  - DYSKINESIA [None]
  - BURNING SENSATION [None]
  - PARAESTHESIA [None]
